FAERS Safety Report 10502099 (Version 3)
Quarter: 2014Q4

REPORT INFORMATION
  Report Type: Spontaneous
  Country: GB (occurrence: GB)
  Receive Date: 20141007
  Receipt Date: 20141021
  Transmission Date: 20150528
  Serious: Yes (Life-Threatening, Hospitalization)
  Sender: FDA-Public Use
  Company Number: GB-CUBIST PHARMACEUTICALS, INC.-2014CBST001315

PATIENT

DRUGS (1)
  1. CUBICIN [Suspect]
     Active Substance: DAPTOMYCIN
     Indication: PRODUCT USED FOR UNKNOWN INDICATION
     Dosage: UNK UNK, UNK
     Route: 065
     Dates: start: 20140724

REACTIONS (5)
  - Respiratory disorder [Unknown]
  - Eosinophilic pneumonia [Recovered/Resolved]
  - Weaning failure [Unknown]
  - Eosinophil count increased [Recovering/Resolving]
  - Pulmonary eosinophilia [Unknown]

NARRATIVE: CASE EVENT DATE: 201409
